FAERS Safety Report 10405157 (Version 1)
Quarter: 2014Q3

REPORT INFORMATION
  Report Type: Spontaneous
  Country: US (occurrence: None)
  Receive Date: 20140820
  Receipt Date: 20140820
  Transmission Date: 20150326
  Serious: Yes (Other)
  Sender: FDA-Public Use
  Company Number: VAL_03307_2014

PATIENT
  Age: 22 Year
  Sex: Female

DRUGS (1)
  1. CARBAMAZEPINE. [Suspect]
     Active Substance: CARBAMAZEPINE
     Indication: CONVULSION

REACTIONS (4)
  - Convulsion [None]
  - Exposure during pregnancy [None]
  - Drug interaction [None]
  - Pregnancy with implant contraceptive [None]
